FAERS Safety Report 8116825-5 (Version None)
Quarter: 2012Q1

REPORT INFORMATION
  Report Type: 
  Country: None (occurrence: None)
  Receive Date: 20120206
  Receipt Date: 20120202
  Transmission Date: 20120608
  Serious: Yes (Disabling)
  Sender: FDA-Public Use
  Company Number: PHHY2012IN009114

PATIENT
  Age: 69 Year
  Sex: Female

DRUGS (2)
  1. ZOLEDRONOC ACID [Suspect]
     Dosage: 5 MG/100ML
     Route: 042
     Dates: start: 20090801
  2. ZOLEDRONOC ACID [Suspect]
     Dosage: 5 MG/100ML
     Route: 042
     Dates: start: 20111222

REACTIONS (4)
  - VOMITING [None]
  - FRACTURE [None]
  - HEADACHE [None]
  - NAUSEA [None]
